FAERS Safety Report 5778363-4 (Version None)
Quarter: 2008Q2

REPORT INFORMATION
  Report Type: 
  Country: None (occurrence: None)
  Receive Date: 20080616
  Receipt Date: 20080107
  Transmission Date: 20081010
  Serious: Yes (Disabling)
  Sender: FDA-Public Use
  Company Number: WAES 0801USA00911

PATIENT
  Age: 81 Year
  Sex: Female

DRUGS (9)
  1. COZAAR [Suspect]
     Indication: PROPHYLAXIS
     Dosage: 50 MG/DAILY/PO; 100 MG/DAILY/PO
     Route: 048
     Dates: start: 20071130, end: 20071215
  2. COZAAR [Suspect]
     Indication: PROPHYLAXIS
     Dosage: 50 MG/DAILY/PO; 100 MG/DAILY/PO
     Route: 048
     Dates: start: 20071215
  3. SYNTHROID [Concomitant]
  4. ASTRAGALUS [Concomitant]
  5. CHONDROITIN [Concomitant]
  6. DILTIAZEM HYDROCHLORIDE [Concomitant]
  7. GLUCOSAMINE [Concomitant]
  8. GLYBURIDE [Concomitant]
  9. INSULIN [Concomitant]

REACTIONS (3)
  - BACK PAIN [None]
  - MUSCULOSKELETAL PAIN [None]
  - PAIN IN EXTREMITY [None]
